FAERS Safety Report 5990461-9 (Version None)
Quarter: 2008Q4

REPORT INFORMATION
  Report Type: 
  Country: None (occurrence: None)
  Receive Date: 20081210
  Receipt Date: 20081203
  Transmission Date: 20090506
  Serious: No
  Sender: FDA-Public Use
  Company Number: 005123

PATIENT
  Age: 25 Year
  Sex: Female

DRUGS (5)
  1. BUSULFEX [Suspect]
     Indication: STEM CELL TRANSPLANT
  2. CAMPATH [Concomitant]
  3. FLUDARABINE PHOSPHATE [Concomitant]
  4. PREDNISOLONE [Concomitant]
  5. TACROLIMUS [Concomitant]

REACTIONS (2)
  - CATARACT SUBCAPSULAR [None]
  - CYTOMEGALOVIRUS CHORIORETINITIS [None]
